FAERS Safety Report 19623943 (Version 1)
Quarter: 2021Q3

REPORT INFORMATION
  Report Type: Spontaneous
  Country: US (occurrence: US)
  Receive Date: 20210728
  Receipt Date: 20210728
  Transmission Date: 20211014
  Serious: Yes (Other)
  Sender: FDA-Public Use
  Company Number: US-GW PHARMA-202107USGW03587

PATIENT

DRUGS (1)
  1. EPIDIOLEX [Suspect]
     Active Substance: CANNABIDIOL
     Indication: LENNOX-GASTAUT SYNDROME
     Dosage: 11.74 MG/KG/DAY, 350 MILLIGRAM, BID
     Route: 048
     Dates: start: 2020

REACTIONS (2)
  - Incorrect dose administered [Unknown]
  - Seizure [Unknown]
